FAERS Safety Report 18257581 (Version 1)
Quarter: 2020Q3

REPORT INFORMATION
  Report Type: Spontaneous
  Country: US (occurrence: US)
  Receive Date: 20200911
  Receipt Date: 20200911
  Transmission Date: 20201103
  Serious: Yes (Other)
  Sender: FDA-Public Use
  Company Number: None

PATIENT
  Age: 35 Year
  Sex: Female

DRUGS (6)
  1. ATOVAQUONE. [Suspect]
     Active Substance: ATOVAQUONE
     Indication: PNEUMONIA
     Dosage: ?          QUANTITY:1 10 ML;?
     Route: 048
     Dates: start: 20200704, end: 20200724
  2. PRILOSEC [Concomitant]
     Active Substance: OMEPRAZOLE MAGNESIUM
  3. PLAQUENIL [Concomitant]
     Active Substance: HYDROXYCHLOROQUINE SULFATE
  4. PREDNISONE. [Concomitant]
     Active Substance: PREDNISONE
  5. CELLCEPT [Concomitant]
     Active Substance: MYCOPHENOLATE MOFETIL\MYCOPHENOLATE MOFETIL HYDROCHLORIDE
  6. ATOVAQUONE. [Suspect]
     Active Substance: ATOVAQUONE
     Indication: PROPHYLAXIS
     Dosage: ?          QUANTITY:1 10 ML;?
     Route: 048
     Dates: start: 20200704, end: 20200724

REACTIONS (5)
  - Tooth discolouration [None]
  - Stomatitis [None]
  - Burning sensation [None]
  - Throat irritation [None]
  - Gingival recession [None]

NARRATIVE: CASE EVENT DATE: 20200724
